FAERS Safety Report 5062432-0 (Version None)
Quarter: 2006Q3

REPORT INFORMATION
  Report Type: 
  Country: None (occurrence: None)
  Receive Date: 20060721
  Receipt Date: 20060704
  Transmission Date: 20061208
  Serious: Yes (Other)
  Sender: FDA-Public Use
  Company Number: BR200605001459

PATIENT
  Age: 66 Year
  Sex: Male
  Weight: 67 kg

DRUGS (4)
  1. FORTEO [Suspect]
     Indication: OSTEOPOROSIS
     Dosage: 20 UG DAILY (1/D) SUBCUTANEOUS
     Route: 058
     Dates: start: 20060203, end: 20060430
  2. FORTEO PEN (FORTEO PEN) [Concomitant]
  3. CALCIUM CARBONATE(CALCIUM CARBONATE) [Concomitant]
  4. SERENADE (DIAZEPAM, MEPROBAMATE, NITRAZEPAM) [Concomitant]

REACTIONS (3)
  - METASTATIC SQUAMOUS CELL CARCINOMA [None]
  - SALIVARY GLAND CANCER [None]
  - WOUND DEHISCENCE [None]
